FAERS Safety Report 5298291-0 (Version None)
Quarter: 2007Q2

REPORT INFORMATION
  Report Type: 
  Country: None (occurrence: None)
  Receive Date: 20070409
  Receipt Date: 20070329
  Transmission Date: 20071010
  Serious: Yes (Hospitalization)
  Sender: FDA-Public Use
  Company Number: 236678

PATIENT
  Age: 76 Year
  Sex: Female

DRUGS (4)
  1. MABTHERA (RITUXIMB) CONCENTRATE FOR SOLUTION FOR INFUSION [Suspect]
     Indication: NON-HODGKIN'S LYMPHOMA
     Dosage: 700 MG, Q3W, INTRAVENOUS
     Route: 042
     Dates: start: 20070108, end: 20070223
  2. CYCLOPHOSPHAMIDE [Concomitant]
  3. VINCRISTINE [Concomitant]
  4. PREDNISONE TAB [Concomitant]

REACTIONS (2)
  - COLITIS [None]
  - FEBRILE NEUTROPENIA [None]
